FAERS Safety Report 9521610 (Version 1)
Quarter: 2013Q3

REPORT INFORMATION
  Report Type: Spontaneous
  Country: US (occurrence: US)
  Receive Date: 20130913
  Receipt Date: 20130913
  Transmission Date: 20140515
  Serious: No
  Sender: FDA-Public Use
  Company Number: US-PFIZER INC-2013261440

PATIENT
  Age: 67 Year
  Sex: Male
  Weight: 82.99 kg

DRUGS (5)
  1. GENOTROPIN [Suspect]
     Indication: HYPOTHALAMO-PITUITARY DISORDER
     Dosage: 0.4 MG, 1X/DAY
     Dates: end: 20130908
  2. ACETYLSALICYLIC ACID [Suspect]
     Indication: HYPOTHALAMO-PITUITARY DISORDER
     Dosage: 325 MG, 1X/DAY
  3. SYNTHROID [Concomitant]
     Indication: HYPOTHALAMO-PITUITARY DISORDER
     Dosage: 0.125 MG, 1X/DAY
     Route: 048
  4. PREDNISONE [Concomitant]
     Indication: HYPOTHALAMO-PITUITARY DISORDER
     Dosage: 5 MG, 1X/DAY
     Route: 048
  5. LISINOPRIL [Concomitant]
     Indication: HYPERTENSION
     Dosage: 20 MG, 1X/DAY

REACTIONS (1)
  - Injection site pain [Recovered/Resolved]
